FAERS Safety Report 10685185 (Version 1)
Quarter: 2014Q4

REPORT INFORMATION
  Report Type: Spontaneous
  Country: US (occurrence: None)
  Receive Date: 20141230
  Receipt Date: 20141230
  Transmission Date: 20150529
  Serious: No
  Sender: FDA-Public Use
  Company Number: None

PATIENT
  Age: 60 Year
  Sex: Female

DRUGS (1)
  1. TECFIDERA [Suspect]
     Active Substance: DIMETHYL FUMARATE
     Indication: MULTIPLE SCLEROSIS
     Dosage: 240.000  BID  PO
     Route: 048
     Dates: start: 20130422, end: 20141229

REACTIONS (1)
  - Blood test abnormal [None]

NARRATIVE: CASE EVENT DATE: 20141229
